FAERS Safety Report 10180098 (Version 1)
Quarter: 2014Q2

REPORT INFORMATION
  Report Type: Spontaneous
  Country: US (occurrence: US)
  Receive Date: 20140519
  Receipt Date: 20140519
  Transmission Date: 20141212
  Serious: No
  Sender: FDA-Public Use
  Company Number: US-AMGEN INC.-USASP2013076794

PATIENT
  Age: 71 Year
  Sex: Female

DRUGS (5)
  1. PROLIA [Suspect]
     Indication: OSTEOPOROSIS
     Dosage: UNK
     Route: 065
     Dates: start: 201208
  2. TYLENOL                            /00020001/ [Concomitant]
     Dosage: UNK
     Route: 065
  3. TYLENOL PM [Concomitant]
     Dosage: UNK
     Route: 065
  4. MELOXICAM [Concomitant]
  5. IBUPROFEN [Concomitant]

REACTIONS (7)
  - Pain [Unknown]
  - Arthritis [Unknown]
  - Musculoskeletal discomfort [Unknown]
  - Middle insomnia [Unknown]
  - Arthralgia [Unknown]
  - Musculoskeletal pain [Unknown]
  - Pain in extremity [Unknown]
